FAERS Safety Report 24222956 (Version 1)
Quarter: 2024Q3

REPORT INFORMATION
  Report Type: Spontaneous
  Country: US (occurrence: None)
  Receive Date: 20240816
  Receipt Date: 20240816
  Transmission Date: 20241016
  Serious: Yes (Death)
  Sender: Public
  Company Number: None

PATIENT
  Age: 69 Year
  Sex: Male
  Weight: 75.02 kg

DRUGS (1)
  1. POMALYST [Suspect]
     Active Substance: POMALIDOMIDE
     Indication: Plasma cell myeloma
     Dosage: 4 MG DAILY ON DAYS 1-21 OF 28 DAY CYCLE ORAL?
     Route: 048
     Dates: start: 20240208, end: 20240806

REACTIONS (1)
  - Hospice care [None]

NARRATIVE: CASE EVENT DATE: 20240806
